FAERS Safety Report 19856465 (Version 2)
Quarter: 2021Q3

REPORT INFORMATION
  Report Type: Spontaneous
  Country: US (occurrence: US)
  Receive Date: 20210920
  Receipt Date: 20210922
  Transmission Date: 20211014
  Serious: Yes (Other)
  Sender: FDA-Public Use
  Company Number: US-BRISTOL-MYERS SQUIBB COMPANY-BMS-2021-095000

PATIENT
  Age: 84 Year
  Sex: Female
  Weight: 53.98 kg

DRUGS (2)
  1. TYLENOL [Concomitant]
     Active Substance: ACETAMINOPHEN
     Indication: PRODUCT USED FOR UNKNOWN INDICATION
     Dosage: UNK
     Route: 065
  2. ELIQUIS [Suspect]
     Active Substance: APIXABAN
     Indication: CEREBROVASCULAR ACCIDENT PROPHYLAXIS
     Dosage: UNK UNK, QD
     Route: 065

REACTIONS (7)
  - Hypotension [Unknown]
  - Tooth disorder [Unknown]
  - Drug ineffective [Unknown]
  - Adverse event [Unknown]
  - Treatment noncompliance [Unknown]
  - Weight decreased [Unknown]
  - Visual impairment [Unknown]
